FAERS Safety Report 12084260 (Version 1)
Quarter: 2016Q1

REPORT INFORMATION
  Report Type: Spontaneous
  Country: US (occurrence: US)
  Receive Date: 20160217
  Receipt Date: 20160217
  Transmission Date: 20160526
  Serious: No
  Sender: FDA-Public Use
  Company Number: US-OTSUKA-2015_013733

PATIENT

DRUGS (1)
  1. BUSULFEX [Suspect]
     Active Substance: BUSULFAN
     Indication: PRODUCT USED FOR UNKNOWN INDICATION
     Dosage: UNK
     Route: 042

REACTIONS (4)
  - No adverse event [Unknown]
  - Poor quality drug administered [Unknown]
  - Product deposit [Unknown]
  - Product quality issue [Unknown]
